FAERS Safety Report 8036955-6 (Version None)
Quarter: 2011Q4

REPORT INFORMATION
  Report Type: 
  Country: None (occurrence: None)
  Receive Date: 20111202
  Receipt Date: 20100430
  Transmission Date: 20120403
  Serious: Yes (Hospitalization)
  Sender: FDA-Public Use
  Company Number: 2010SP025088

PATIENT
  Age: 25 Year
  Sex: Female
  Weight: 95.2554 kg

DRUGS (3)
  1. NUVARING [Suspect]
     Indication: CONTRACEPTION
     Dates: start: 20060522, end: 20080401
  2. IBUPROFEN /00109201/ [Concomitant]
  3. NAPROXEN [Concomitant]

REACTIONS (3)
  - PULMONARY EMBOLISM [None]
  - ANXIETY [None]
  - DEEP VEIN THROMBOSIS [None]
